FAERS Safety Report 4897820-6 (Version None)
Quarter: 2006Q1

REPORT INFORMATION
  Report Type: 
  Country: None (occurrence: None)
  Receive Date: 20060201
  Receipt Date: 20051121
  Transmission Date: 20060701
  Serious: Yes (Hospitalization)
  Sender: FDA-Public Use
  Company Number: US-GLAXOSMITHKLINE-A0583465A

PATIENT
  Sex: Male

DRUGS (12)
  1. AVANDAMET [Suspect]
     Dates: end: 20051119
  2. AVANDIA [Suspect]
     Route: 048
     Dates: start: 20050501, end: 20051207
  3. FUROSEMIDE [Concomitant]
  4. CARDURA [Concomitant]
  5. PRANDIN [Concomitant]
  6. DIGITEK [Concomitant]
  7. COUMADIN [Concomitant]
  8. LOTREL [Concomitant]
  9. GEMFIBROZIL [Concomitant]
  10. IRON [Concomitant]
  11. ASCORBIC ACID [Concomitant]
  12. INSULIN [Concomitant]

REACTIONS (3)
  - BLOOD GLUCOSE DECREASED [None]
  - DRUG INEFFECTIVE [None]
  - LOSS OF CONSCIOUSNESS [None]
